FAERS Safety Report 9018436 (Version 1)
Quarter: 2013Q1

REPORT INFORMATION
  Report Type: Spontaneous
  Country: US (occurrence: None)
  Receive Date: 20130111
  Receipt Date: 20130111
  Transmission Date: 20140127
  Serious: Yes (Hospitalization)
  Sender: FDA-Public Use
  Company Number: None

PATIENT
  Age: 78 Year
  Sex: Male
  Weight: 107 kg

DRUGS (1)
  1. AZATHIOPRINE [Suspect]
     Dosage: 100 MG BID PO
     Route: 048

REACTIONS (6)
  - Respiratory failure [None]
  - Renal failure [None]
  - Bacteraemia [None]
  - Shock [None]
  - Peripheral ischaemia [None]
  - Pancytopenia [None]
